FAERS Safety Report 8791304 (Version 3)
Quarter: 2013Q1

REPORT INFORMATION
  Report Type: Spontaneous
  Country: US (occurrence: None)
  Receive Date: 20120905
  Receipt Date: 20121115
  Transmission Date: 20140127
  Serious: Yes (Hospitalization, Other)
  Sender: FDA-Public Use
  Company Number: 2012PROUSA01379

PATIENT
  Age: 84 Year
  Sex: Male
  Weight: 78.9 kg

DRUGS (15)
  1. PROVENGE (SIPULEUCEL-T) SUSPENSION [Suspect]
     Indication: PROSTATE CANCER METASTATIC
     Route: 042
     Dates: start: 20120316, end: 20120316
  2. METOPROLOL (METOPROLOL) [Concomitant]
  3. WARFARIN (WARFARIN) [Concomitant]
  4. LEVOXYL (LEVOTHYROXINE SODIUM) [Concomitant]
  5. GLYBURIDE (GLIBENCLAMIDE) [Concomitant]
  6. LORAZEPAM (LORAZEPAM) [Concomitant]
  7. WELCHOL (COLESEVELAM HYDROCHLORIDE) [Concomitant]
  8. AVODART (DUTASTERIDE) [Concomitant]
  9. GABAPENTIN (GABAPENTIN) [Concomitant]
  10. SOTALOL [Concomitant]
  11. BICALUTAMIDE (BICALUTAMIDE) [Concomitant]
  12. INSPRA /01362602/  (MONTELUKAST SODIUM) [Concomitant]
  13. JANUVIA (SITAGLIPTIN PHOSPHATE) [Concomitant]
  14. AMLODIPINE BESYLATE (AMLODIPINE BESILATE) [Concomitant]
  15. REPAGLINIDE (REPAGLINIDE) [Concomitant]

REACTIONS (3)
  - Atrial fibrillation [None]
  - Cardiac failure congestive [None]
  - Dyspnoea [None]
